FAERS Safety Report 7765726-0 (Version None)
Quarter: 2011Q3

REPORT INFORMATION
  Report Type: 
  Country: None (occurrence: None)
  Receive Date: 20110921
  Receipt Date: 20110914
  Transmission Date: 20111222
  Serious: Yes (Other)
  Sender: FDA-Public Use
  Company Number: PHHY2011BR79776

PATIENT
  Sex: Female
  Weight: 15 kg

DRUGS (2)
  1. AMOXICILLIN AND CLAVULANATE POTASSIUM [Suspect]
     Indication: URINARY TRACT INFECTION
     Dosage: 4 ML, BID
     Route: 048
     Dates: start: 20110905
  2. PREDNISOLONE [Concomitant]
     Dosage: 3 ML, BID
     Route: 048

REACTIONS (2)
  - HAEMATOCHEZIA [None]
  - COLON INJURY [None]
